FAERS Safety Report 10178497 (Version 1)
Quarter: 2014Q2

REPORT INFORMATION
  Report Type: Other
  Country: US (occurrence: US)
  Receive Date: 20140519
  Receipt Date: 20140519
  Transmission Date: 20141212
  Serious: Yes (Other)
  Sender: FDA-Public Use
  Company Number: US-LUPIN PHARMACEUTICALS INC.-E2B_00002002

PATIENT
  Age: 65 Year
  Sex: Female
  Weight: 99.88 kg

DRUGS (2)
  1. SERTRALINE TABLETS USP 50 MG [Suspect]
     Indication: ANXIETY
     Dates: start: 20140401, end: 20140416
  2. SYNTHROID [Concomitant]
     Indication: PRODUCT USED FOR UNKNOWN INDICATION
     Route: 065

REACTIONS (2)
  - Pulmonary congestion [Recovered/Resolved]
  - Cough [Recovered/Resolved]
